FAERS Safety Report 15171914 (Version 1)
Quarter: 2018Q3

REPORT INFORMATION
  Report Type: Report from Study
  Country: US (occurrence: US)
  Receive Date: 20180720
  Receipt Date: 20180720
  Transmission Date: 20181010
  Serious: No
  Sender: FDA-Public Use
  Company Number: US-AMGEN-USASL2018056821

PATIENT
  Age: 61 Year
  Sex: Male

DRUGS (1)
  1. REPATHA [Suspect]
     Active Substance: EVOLOCUMAB
     Indication: TYPE IIA HYPERLIPIDAEMIA
     Dosage: 140 MG/ML, Q2WK
     Route: 065
     Dates: start: 20171213

REACTIONS (8)
  - Pain in extremity [Unknown]
  - Nasal congestion [Unknown]
  - Hyperhidrosis [Unknown]
  - Asthenia [Unknown]
  - Irritability [Unknown]
  - Muscular weakness [Unknown]
  - Thyroid disorder [Unknown]
  - Dizziness [Unknown]
